FAERS Safety Report 9678285 (Version 2)
Quarter: 2013Q4

REPORT INFORMATION
  Report Type: Spontaneous
  Country: GB (occurrence: GB)
  Receive Date: 20131108
  Receipt Date: 20131125
  Transmission Date: 20140711
  Serious: Yes (Hospitalization)
  Sender: FDA-Public Use
  Company Number: GB-WATSON-2013-20545

PATIENT
  Age: 65 Year
  Sex: Female
  Weight: 61 kg

DRUGS (16)
  1. DOXORUBICIN (UNKNOWN) [Suspect]
     Indication: OVARIAN CANCER
     Dosage: 1.7857 MG/M2, UNK; DOSAGE FORM: LIPOSOME INJECTION
     Route: 042
     Dates: start: 20130916, end: 20130916
  2. DOXORUBICIN (UNKNOWN) [Suspect]
     Dosage: 50 MG/M2, ONCE EVERY 28 DAYS; DOSAGE FORM: LIPOSOME INJECTION
     Route: 042
     Dates: start: 20130819, end: 20130819
  3. FOLIC ACID (UNKNOWN) [Suspect]
     Indication: SINGLE PHOTON EMISSION COMPUTERISED TOMOGRAM
     Dosage: 5 MG, UNKNOWN; DOSAGE FORM: UNSPECIFIED, ONCE
     Route: 042
     Dates: start: 20130812, end: 20130812
  4. TECHNETIUM TC 99M MEDRONATE [Suspect]
     Indication: SINGLE PHOTON EMISSION COMPUTERISED TOMOGRAM
     Dosage: 825.13 MBQ, UNKNOWN; DOSAGE FORM: UNSPECIFIED, ONCE
     Route: 042
     Dates: start: 20130812, end: 20130812
  5. DOMPERIDONE [Concomitant]
     Indication: PROPHYLAXIS OF NAUSEA AND VOMITING
     Dosage: DOSAGE FORM: UNSPECIFIED
     Route: 048
     Dates: start: 20130917, end: 20130922
  6. DIFFLAM [Concomitant]
     Indication: MUCOSAL INFLAMMATION
     Dosage: 10 ML, QID; DOSAGE FORM: UNSPECIFIED
     Route: 065
     Dates: start: 20130930
  7. AMLODIPINE [Concomitant]
     Indication: HYPERTENSION
     Dosage: 5 MG, DAILY; DOSAGE FORM: UNSPECIFIED
     Route: 048
     Dates: start: 2011
  8. CALCICHEW [Concomitant]
     Indication: PRODUCT USED FOR UNKNOWN INDICATION
     Dosage: 1 DF, BID; DOSAGE FORM: TABLETS, 2 TABLETS
     Route: 048
     Dates: start: 2009
  9. RAMIPRIL [Concomitant]
     Indication: HYPERTENSION
     Dosage: DOSAGE FORM: UNSPECIFIED
     Route: 065
     Dates: start: 2012
  10. BISOPROLOL [Concomitant]
     Indication: HYPERTENSION
     Dosage: 2.5 MG, DAILY; DOSAGE FORM: UNSPECIFIED
     Route: 048
     Dates: start: 201301
  11. ALENDRONATE [Concomitant]
     Indication: OSTEOPOROSIS PROPHYLAXIS
     Dosage: 70 MG, 1/WEEK; DOSAGE FORM: UNSPECIFIED
     Route: 048
     Dates: start: 201308
  12. NYSTATIN [Concomitant]
     Indication: MUCOSAL INFLAMMATION
     Dosage: 100000 U/ML AS REQUIRED
     Route: 048
     Dates: start: 20130902, end: 20130909
  13. CYCLIZINE [Concomitant]
     Indication: PRODUCT USED FOR UNKNOWN INDICATION
     Dosage: 50 MG, TID; DOSAGE FORM: UNSPECIFIED
     Route: 048
     Dates: start: 20130902
  14. METOCLOPRAMIDE [Concomitant]
     Indication: PROPHYLAXIS OF NAUSEA AND VOMITING
     Dosage: 20 MG, UNKNOWN; DOSAGE FORM: UNSPECIFIED
     Route: 042
     Dates: start: 20130819, end: 20130819
  15. SUCRALFATE [Concomitant]
     Indication: MUCOSAL INFLAMMATION
     Dosage: 10 ML, QID; DOSAGE FORM: UNSPECIFIED
     Route: 065
     Dates: start: 20130930
  16. ORAMORPH [Concomitant]
     Indication: MUCOSAL INFLAMMATION
     Dosage: 2.5 MG, QID; DOSAGE FORM: UNSPECIFIED
     Route: 048
     Dates: start: 20130930

REACTIONS (3)
  - Stomatitis [Recovering/Resolving]
  - Mucosal inflammation [Unknown]
  - Dysphagia [Unknown]
